FAERS Safety Report 18334521 (Version 1)
Quarter: 2020Q4

REPORT INFORMATION
  Report Type: Spontaneous
  Country: US (occurrence: US)
  Receive Date: 20201001
  Receipt Date: 20201001
  Transmission Date: 20210113
  Serious: No
  Sender: FDA-Public Use
  Company Number: US-ASTRAZENECA-2020SF14664

PATIENT
  Age: 30050 Day
  Sex: Female
  Weight: 72.6 kg

DRUGS (2)
  1. SYMBICORT [Suspect]
     Active Substance: BUDESONIDE\FORMOTEROL FUMARATE DIHYDRATE
     Indication: ASTHMA
     Dosage: 160/4.5MCG 2 PUFFS TWICE A DAY
     Route: 055
  2. ALBUTEROL. [Concomitant]
     Active Substance: ALBUTEROL
     Route: 055
     Dates: start: 20200812

REACTIONS (7)
  - Asthenia [Unknown]
  - Drug hypersensitivity [Unknown]
  - Illness [Unknown]
  - Diarrhoea [Unknown]
  - Mobility decreased [Unknown]
  - Urticaria [Unknown]
  - Retching [Unknown]

NARRATIVE: CASE EVENT DATE: 20200810
